FAERS Safety Report 16979094 (Version 1)
Quarter: 2019Q4

REPORT INFORMATION
  Report Type: Spontaneous
  Country: US (occurrence: US)
  Receive Date: 20191031
  Receipt Date: 20191031
  Transmission Date: 20200122
  Serious: No
  Sender: FDA-Public Use
  Company Number: US-PFIZER INC-2019468462

PATIENT
  Age: 57 Year
  Sex: Female
  Weight: 97.52 kg

DRUGS (1)
  1. VENLAFAXINE HCL [Suspect]
     Active Substance: VENLAFAXINE HYDROCHLORIDE
     Dosage: UNK [37.5MG AND THEN 75MG ALONG WITH THE 150MG DOSE TO EVENTUALLY GET UP TO 300 MG]

REACTIONS (1)
  - Drug ineffective [Unknown]
